FAERS Safety Report 16624787 (Version 2)
Quarter: 2019Q3

REPORT INFORMATION
  Report Type: Spontaneous
  Country: DE (occurrence: DE)
  Receive Date: 20190724
  Receipt Date: 20190805
  Transmission Date: 20191004
  Serious: Yes (Life-Threatening, Hospitalization, Other)
  Sender: FDA-Public Use
  Company Number: DE-AMGEN-DEUSP2019115251

PATIENT
  Sex: Female

DRUGS (4)
  1. DEXAMETHASONE. [Concomitant]
     Active Substance: DEXAMETHASONE
     Indication: PREMEDICATION
     Dosage: 8 MILLIGRAM, BID (3 DAY COURSE)
  2. NEUPOGEN [Suspect]
     Active Substance: FILGRASTIM
     Indication: PROPHYLAXIS
     Dosage: 5 MICROGRAM/KILOGRAM, QD (ON DAY 2 OF EACH CHEMOTHERAPY CYCLE)
     Route: 058
  3. DOCETAXEL. [Concomitant]
     Active Substance: DOCETAXEL
     Indication: BREAST CANCER
     Dosage: 75 MILLIGRAM/SQ. METER, CYCLICAL (1 HOUR INFUSION)
  4. DOXORUBICIN [Concomitant]
     Active Substance: DOXORUBICIN
     Indication: BREAST CANCER
     Dosage: 60 MILLIGRAM/SQ. METER, CYCLICAL (BOLUS INJECTION, DAY 1 OF EACH CYCLE)

REACTIONS (20)
  - Adverse event [Unknown]
  - Stomatitis [Unknown]
  - Abdominal pain upper [Unknown]
  - Hypotension [Unknown]
  - Fatigue [Unknown]
  - Alopecia [Unknown]
  - Decreased appetite [Unknown]
  - Injection site reaction [Unknown]
  - Diarrhoea [Unknown]
  - Vertigo [Unknown]
  - Pyrexia [Unknown]
  - Asthenia [Unknown]
  - Hyperaemia [Unknown]
  - Nausea [Unknown]
  - Vomiting [Unknown]
  - Myalgia [Unknown]
  - Febrile neutropenia [Unknown]
  - Bone pain [Unknown]
  - Arthralgia [Unknown]
  - Dyspnoea [Unknown]
